FAERS Safety Report 13105243 (Version 1)
Quarter: 2017Q1

REPORT INFORMATION
  Report Type: Spontaneous
  Country: US (occurrence: US)
  Receive Date: 20170111
  Receipt Date: 20170111
  Transmission Date: 20170428
  Serious: Yes (Death, Hospitalization)
  Sender: FDA-Public Use
  Company Number: US-CLINIGEN GROUP PLC/ CLINIGEN HEALTHCARE LTD-E2B_00005602

PATIENT
  Age: 55 Year
  Sex: Male

DRUGS (6)
  1. GANCICLOVIR - INTRAVENOUS INFUSION [Concomitant]
     Indication: ENCEPHALITIS CYTOMEGALOVIRUS
     Route: 042
  2. FOSCARNET?SODIUM [Suspect]
     Active Substance: FOSCARNET SODIUM
  3. PREDNISONE. [Concomitant]
     Active Substance: PREDNISONE
  4. CIDOFOVIR. [Concomitant]
     Active Substance: CIDOFOVIR
     Indication: ENCEPHALITIS CYTOMEGALOVIRUS
  5. GANCICLOVIR - INTRAVENOUS INFUSION [Concomitant]
     Indication: CYTOMEGALOVIRUS VIRAEMIA
     Route: 042
  6. FOSCARNET?SODIUM [Suspect]
     Active Substance: FOSCARNET SODIUM
     Indication: CYTOMEGALOVIRUS VIRAEMIA
     Route: 042

REACTIONS (7)
  - Nephropathy toxic [Unknown]
  - Neurological decompensation [Unknown]
  - Lethargy [Unknown]
  - Weight decreased [Unknown]
  - Graft versus host disease in gastrointestinal tract [Unknown]
  - Death [Fatal]
  - Brain stem infarction [Unknown]
